FAERS Safety Report 5196504-7 (Version None)
Quarter: 2006Q4

REPORT INFORMATION
  Report Type: 
  Country: None (occurrence: None)
  Receive Date: 20061227
  Receipt Date: 20061211
  Transmission Date: 20070319
  Serious: Yes (Congenital Anomaly)
  Sender: FDA-Public Use
  Company Number: GXKR2006GB08121

PATIENT

DRUGS (3)
  1. TRAMADOL HCL [Suspect]
     Dosage: TRANSPLACENTAL
     Route: 064
  2. CO-DYDRAMOL (DIHYDROCODONE BITARTRATE, PARACETAMOL) [Concomitant]
  3. IMIPRAMINE [Concomitant]

REACTIONS (2)
  - CONGENITAL MULTIPLEX ARTHROGRYPOSIS [None]
  - DRUG EXPOSURE DURING PREGNANCY [None]
